FAERS Safety Report 20001652 (Version 1)
Quarter: 2021Q4

REPORT INFORMATION
  Report Type: Spontaneous
  Country: NL (occurrence: DE)
  Receive Date: 20211027
  Receipt Date: 20211027
  Transmission Date: 20220304
  Serious: Yes (Hospitalization)
  Sender: FDA-Public Use
  Company Number: DE-ASTRAZENECA-2021A466175

PATIENT
  Age: 77 Year
  Sex: Female

DRUGS (30)
  1. CARBOPLATIN [Suspect]
     Active Substance: CARBOPLATIN
     Indication: Ovarian cancer
     Route: 065
     Dates: start: 20200507, end: 20200507
  2. CARBOPLATIN [Suspect]
     Active Substance: CARBOPLATIN
     Route: 065
     Dates: start: 20200806, end: 20200806
  3. CARBOPLATIN [Suspect]
     Active Substance: CARBOPLATIN
     Route: 065
     Dates: start: 20200528, end: 20200528
  4. CARBOPLATIN [Suspect]
     Active Substance: CARBOPLATIN
     Route: 065
     Dates: start: 20200709, end: 20200709
  5. CARBOPLATIN [Suspect]
     Active Substance: CARBOPLATIN
     Route: 065
     Dates: start: 20200903, end: 20200903
  6. CARBOPLATIN [Suspect]
     Active Substance: CARBOPLATIN
     Route: 065
     Dates: start: 20200618, end: 20200618
  7. DURVALUMAB [Suspect]
     Active Substance: DURVALUMAB
     Indication: Ovarian cancer
     Route: 042
     Dates: start: 20200903, end: 20210225
  8. DURVALUMAB [Suspect]
     Active Substance: DURVALUMAB
     Route: 042
     Dates: start: 20200806, end: 20200806
  9. DURVALUMAB [Suspect]
     Active Substance: DURVALUMAB
     Route: 042
     Dates: start: 20200528, end: 20200709
  10. OLAPARIB [Suspect]
     Active Substance: OLAPARIB
     Indication: Ovarian cancer
     Route: 048
     Dates: start: 20201022, end: 20210317
  11. BEVACIZUMAB [Concomitant]
     Active Substance: BEVACIZUMAB
     Indication: Ovarian cancer
     Route: 065
     Dates: start: 20201022, end: 20201112
  12. BEVACIZUMAB [Concomitant]
     Active Substance: BEVACIZUMAB
     Route: 065
     Dates: start: 20200528, end: 20200528
  13. BEVACIZUMAB [Concomitant]
     Active Substance: BEVACIZUMAB
     Route: 065
     Dates: start: 20200507, end: 20200507
  14. BEVACIZUMAB [Concomitant]
     Active Substance: BEVACIZUMAB
     Route: 065
     Dates: start: 20200618, end: 20200618
  15. BEVACIZUMAB [Concomitant]
     Active Substance: BEVACIZUMAB
     Route: 065
     Dates: start: 20210225, end: 20210225
  16. BEVACIZUMAB [Concomitant]
     Active Substance: BEVACIZUMAB
     Route: 065
     Dates: start: 20201203, end: 20201203
  17. BEVACIZUMAB [Concomitant]
     Active Substance: BEVACIZUMAB
     Route: 065
     Dates: start: 20200903, end: 20200924
  18. BEVACIZUMAB [Concomitant]
     Active Substance: BEVACIZUMAB
     Route: 065
     Dates: start: 20210204, end: 20210204
  19. BEVACIZUMAB [Concomitant]
     Active Substance: BEVACIZUMAB
     Route: 065
     Dates: start: 20200709, end: 20200709
  20. BEVACIZUMAB [Concomitant]
     Active Substance: BEVACIZUMAB
     Route: 065
     Dates: start: 20200806, end: 20200806
  21. BEVACIZUMAB [Concomitant]
     Active Substance: BEVACIZUMAB
     Route: 065
     Dates: start: 20201223, end: 20210114
  22. CALCIUM LACTATE [Concomitant]
     Active Substance: CALCIUM LACTATE
     Indication: Osteoporosis
     Route: 048
     Dates: start: 20160915
  23. RAMIPRIL [Concomitant]
     Active Substance: RAMIPRIL
     Indication: Hypertension
     Route: 048
     Dates: start: 20081015
  24. AMLODIPINE [Concomitant]
     Active Substance: AMLODIPINE BESYLATE
     Indication: Hypertension
     Route: 048
     Dates: start: 20081015
  25. PACLITAXEL [Concomitant]
     Active Substance: PACLITAXEL
     Indication: Ovarian cancer
     Route: 065
     Dates: start: 20200806, end: 20200806
  26. PACLITAXEL [Concomitant]
     Active Substance: PACLITAXEL
     Route: 065
     Dates: start: 20200528, end: 20200528
  27. PACLITAXEL [Concomitant]
     Active Substance: PACLITAXEL
     Route: 065
     Dates: start: 20200618, end: 20200618
  28. PACLITAXEL [Concomitant]
     Active Substance: PACLITAXEL
     Route: 065
     Dates: start: 20200709, end: 20200709
  29. PACLITAXEL [Concomitant]
     Active Substance: PACLITAXEL
     Route: 065
     Dates: start: 20200903, end: 20200903
  30. PACLITAXEL [Concomitant]
     Active Substance: PACLITAXEL
     Route: 065
     Dates: start: 20200507, end: 20200507

REACTIONS (1)
  - Mechanical ileus [Recovered/Resolved with Sequelae]

NARRATIVE: CASE EVENT DATE: 20210518
